FAERS Safety Report 17292222 (Version 3)
Quarter: 2020Q2

REPORT INFORMATION
  Report Type: Spontaneous
  Country: BE (occurrence: BE)
  Receive Date: 20200121
  Receipt Date: 20200514
  Transmission Date: 20200713
  Serious: Yes (Death, Hospitalization, Other)
  Sender: FDA-Public Use
  Company Number: BE-BRISTOL-MYERS SQUIBB COMPANY-BMS-2020-004768

PATIENT
  Age: 78 Year
  Sex: Male
  Weight: 81.5 kg

DRUGS (1)
  1. NIVOLUMAB [Suspect]
     Active Substance: NIVOLUMAB
     Indication: HEPATOCELLULAR CARCINOMA
     Dosage: UNK
     Route: 042
     Dates: start: 20190503, end: 20191223

REACTIONS (3)
  - Pneumonia [Fatal]
  - Intentional product use issue [Unknown]
  - Sepsis [Fatal]

NARRATIVE: CASE EVENT DATE: 20200101
